FAERS Safety Report 8186817-9 (Version None)
Quarter: 2012Q1

REPORT INFORMATION
  Report Type: 
  Country: None (occurrence: None)
  Receive Date: 20120306
  Receipt Date: 20120227
  Transmission Date: 20120608
  Serious: Yes (Death, Other)
  Sender: FDA-Public Use
  Company Number: RO-BRISTOL-MYERS SQUIBB COMPANY-16421760

PATIENT
  Age: 36 Year
  Sex: Male

DRUGS (6)
  1. MYDOCALM [Concomitant]
  2. LYRICA [Concomitant]
  3. YERVOY [Suspect]
     Indication: METASTATIC MALIGNANT MELANOMA
     Route: 042
     Dates: start: 20120130, end: 20120130
  4. OXYCONTIN [Concomitant]
  5. OMEZ [Concomitant]
     Dosage: 1 DF:1 TABLET/DAY
  6. MEDROL [Concomitant]

REACTIONS (2)
  - HEPATIC FAILURE [None]
  - DEATH [None]
